FAERS Safety Report 9640573 (Version 1)
Quarter: 2013Q4

REPORT INFORMATION
  Report Type: Report from Study
  Country: US (occurrence: US)
  Receive Date: 20131023
  Receipt Date: 20131023
  Transmission Date: 20140711
  Serious: No
  Sender: FDA-Public Use
  Company Number: US-ABBVIE-13P-163-1100004-00

PATIENT
  Age: 25 Year
  Sex: Female

DRUGS (3)
  1. LUPRON DEPOT [Suspect]
     Indication: ENDOMETRIOSIS
     Dates: start: 20130523
  2. TRAMADOL [Concomitant]
     Indication: ENDOMETRIOSIS
     Dosage: ONE AT A TIME
  3. PERCOCET [Concomitant]
     Indication: PRODUCT USED FOR UNKNOWN INDICATION
     Dosage: 5/325MG, ONE AT A TIME AS NEEDED

REACTIONS (2)
  - Local swelling [Recovered/Resolved]
  - Pain in extremity [Unknown]
